FAERS Safety Report 8948298 (Version 1)
Quarter: 2012Q4

REPORT INFORMATION
  Report Type: Spontaneous
  Country: GB (occurrence: None)
  Receive Date: 20121126
  Receipt Date: 20121126
  Transmission Date: 20130627
  Serious: Yes (Hospitalization, Other)
  Sender: FDA-Public Use
  Company Number: CL-449-2012

PATIENT
  Age: 45 Year
  Sex: Male
  Weight: 83.92 kg

DRUGS (6)
  1. MIDAZOLAM [Suspect]
     Indication: ANXIOLYTIC THERAPY
     Dosage: 2mg  IV  Once
     Route: 042
  2. PROPOFOL [Suspect]
     Dosage: 170mg  IV  Once
     Route: 042
  3. FENTANYL [Suspect]
     Dosage: 50 mcg   Once   IV
     Route: 042
  4. SUCCINYLCHOLINE [Suspect]
     Dosage: 160mg   Once   IV
     Route: 042
  5. DESFLURANE [Suspect]
     Dosage: UNK     UNK     IV
     Route: 042
  6. HYDROMORPHONE [Suspect]
     Dosage: 0.8mg   UNK   IV
     Route: 042

REACTIONS (2)
  - Amnesia [None]
  - Agitation [None]
